FAERS Safety Report 15989877 (Version 2)
Quarter: 2019Q2

REPORT INFORMATION
  Report Type: Spontaneous
  Country: US (occurrence: US)
  Receive Date: 20190221
  Receipt Date: 20190510
  Transmission Date: 20190711
  Serious: No
  Sender: FDA-Public Use
  Company Number: US-BAUSCH-BL-2019-003711

PATIENT
  Sex: Female
  Weight: 57 kg

DRUGS (2)
  1. TRETINOIN GEL 0.01% [Suspect]
     Active Substance: TRETINOIN
     Indication: SKIN WRINKLING
  2. TRETINOIN GEL 0.01% [Suspect]
     Active Substance: TRETINOIN
     Indication: ACNE
     Dosage: STARTED SEVERAL MONTHS AGO
     Route: 061

REACTIONS (1)
  - Drug ineffective [Unknown]
